FAERS Safety Report 4302761-9 (Version None)
Quarter: 2004Q1

REPORT INFORMATION
  Report Type: 
  Country: None (occurrence: None)
  Receive Date: 20040224
  Receipt Date: 20030507
  Transmission Date: 20041129
  Serious: No
  Sender: FDA-Public Use
  Company Number: US-BRISTOL-MYERS SQUIBB COMPANY-12270054

PATIENT
  Age: 46 Year
  Sex: Female
  Weight: 51 kg

DRUGS (1)
  1. KENALOG [Suspect]
     Indication: INFLAMMATION
     Dosage: TOTAL OF 24 INJECTIONS PLUS ^A WHOLE VIAL^ TO SCARS.
     Route: 051
     Dates: start: 20021001

REACTIONS (3)
  - ECCHYMOSIS [None]
  - INJECTION SITE ATROPHY [None]
  - METRORRHAGIA [None]
